FAERS Safety Report 25501491 (Version 5)
Quarter: 2025Q3

REPORT INFORMATION
  Report Type: Spontaneous
  Country: US (occurrence: US)
  Receive Date: 20250701
  Receipt Date: 20250923
  Transmission Date: 20251021
  Serious: No
  Sender: MERCK SHARP & DOHME LLC
  Company Number: US-009507513-2294882

PATIENT
  Sex: Female
  Weight: 66.7 kg

DRUGS (32)
  1. SOTATERCEPT [Suspect]
     Active Substance: SOTATERCEPT
     Indication: Product used for unknown indication
     Dates: start: 20250521
  2. SOTATERCEPT [Suspect]
     Active Substance: SOTATERCEPT
     Dates: start: 2025
  3. SOTATERCEPT [Suspect]
     Active Substance: SOTATERCEPT
     Dates: start: 20250612, end: 20250612
  4. SOTATERCEPT [Suspect]
     Active Substance: SOTATERCEPT
     Dates: start: 20250814, end: 20250814
  5. TYVASO [Suspect]
     Active Substance: TREPROSTINIL
     Indication: Pulmonary arterial hypertension
     Route: 055
     Dates: start: 2025, end: 2025
  6. TYVASO [Suspect]
     Active Substance: TREPROSTINIL
     Indication: Pulmonary arterial hypertension
     Dosage: 80 UG, QID (48 UG+32 UG)
     Route: 055
     Dates: start: 2025
  7. TYVASO [Suspect]
     Active Substance: TREPROSTINIL
     Indication: Pulmonary arterial hypertension
     Dosage: 80 UG, QID (48 UG+32 UG)
     Route: 055
     Dates: start: 20250116, end: 2025
  8. TYVASO [Suspect]
     Active Substance: TREPROSTINIL
     Indication: Pulmonary arterial hypertension
     Dosage: 48UG, QID
     Route: 055
     Dates: start: 2025, end: 2025
  9. OXYGEN [Concomitant]
     Active Substance: OXYGEN
  10. lutein-Zeaxanthin [Concomitant]
  11. FUROSEMIDE [Concomitant]
     Active Substance: FUROSEMIDE
  12. ESTRACE [Concomitant]
     Active Substance: ESTRADIOL
  13. DIGOXIN [Concomitant]
     Active Substance: DIGOXIN
  14. VALACYCLOVIR [Concomitant]
     Active Substance: VALACYCLOVIR HYDROCHLORIDE
  15. Ponaris [Concomitant]
  16. KETOPROFEN [Concomitant]
     Active Substance: KETOPROFEN
  17. OCUVITE [Concomitant]
     Active Substance: VITAMINS
  18. TUMS [Concomitant]
     Active Substance: CALCIUM CARBONATE
     Route: 048
  19. FOLIC ACID [Concomitant]
     Active Substance: FOLIC ACID
  20. POTASSIUM CHLORIDE [Concomitant]
     Active Substance: POTASSIUM CHLORIDE
  21. MECLIZINE [Concomitant]
     Active Substance: MECLIZINE HYDROCHLORIDE
     Route: 048
  22. PANTOPRAZOLE SODIUM [Concomitant]
     Active Substance: PANTOPRAZOLE SODIUM
  23. LYRICA [Concomitant]
     Active Substance: PREGABALIN
  24. ASMANEX HFA [Concomitant]
     Active Substance: MOMETASONE FUROATE
  25. IRON [Concomitant]
     Active Substance: IRON
  26. AFRIN [Concomitant]
     Active Substance: OXYMETAZOLINE HYDROCHLORIDE
  27. BENZONATATE [Concomitant]
     Active Substance: BENZONATATE
  28. VITAMINS [Concomitant]
     Active Substance: VITAMINS
     Route: 048
  29. OPSUMIT [Concomitant]
     Active Substance: MACITENTAN
  30. VITAMIN D3 [Concomitant]
     Active Substance: CHOLECALCIFEROL
  31. MUPIROCIN [Concomitant]
     Active Substance: MUPIROCIN
  32. ADCIRCA [Concomitant]
     Active Substance: TADALAFIL

REACTIONS (10)
  - Psoriasis [Unknown]
  - Neck pain [Unknown]
  - Asthenia [Unknown]
  - Pain in jaw [Recovered/Resolved]
  - Diarrhoea [Unknown]
  - Back pain [Unknown]
  - Fatigue [Recovered/Resolved]
  - Headache [Recovered/Resolved]
  - Inappropriate schedule of product administration [Unknown]
  - Flatulence [Recovered/Resolved]

NARRATIVE: CASE EVENT DATE: 20250101
